FAERS Safety Report 4373729-1 (Version None)
Quarter: 2004Q2

REPORT INFORMATION
  Report Type: 
  Country: None (occurrence: None)
  Receive Date: 20040607
  Receipt Date: 20040607
  Transmission Date: 20050107
  Serious: Yes (Hospitalization)
  Sender: FDA-Public Use
  Company Number: None

PATIENT
  Sex: Male
  Weight: 92 kg

DRUGS (7)
  1. LORAZEPAM [Suspect]
  2. PHENOBARBITAL TAB [Suspect]
  3. TOPIRMATE [Concomitant]
  4. HYDROXYZINE [Concomitant]
  5. ASPIRIN [Concomitant]
  6. SIMVASTATIN [Concomitant]
  7. ATENOLOL [Concomitant]

REACTIONS (3)
  - DRUG ABUSER [None]
  - DYSARTHRIA [None]
  - GAIT DISTURBANCE [None]
